FAERS Safety Report 15301368 (Version 1)
Quarter: 2018Q3

REPORT INFORMATION
  Report Type: Spontaneous
  Country: JP (occurrence: JP)
  Receive Date: 20180821
  Receipt Date: 20180821
  Transmission Date: 20181010
  Serious: Yes (Other)
  Sender: FDA-Public Use
  Company Number: JP-GILEAD-2018-0355960

PATIENT

DRUGS (2)
  1. SUPACAL [Concomitant]
     Dosage: 12 DF/DAY
  2. HARVONI [Suspect]
     Active Substance: LEDIPASVIR\SOFOSBUVIR
     Indication: HEPATITIS C
     Dosage: UNK
     Route: 048
     Dates: start: 201703, end: 201707

REACTIONS (18)
  - Skin discolouration [Unknown]
  - Hypothermia [Unknown]
  - Swelling [Unknown]
  - Therapeutic response unexpected [Recovered/Resolved]
  - Dyspnoea [Unknown]
  - Lip discolouration [Unknown]
  - Oedema [Unknown]
  - Gait disturbance [Unknown]
  - Growth of eyelashes [Unknown]
  - Myocardial infarction [Unknown]
  - Oropharyngeal pain [Unknown]
  - Haematology test [Unknown]
  - Feeling cold [Unknown]
  - Angina pectoris [Unknown]
  - Pruritus [Unknown]
  - Hypoglycaemia [Unknown]
  - Ocular hyperaemia [Unknown]
  - Overdose [Recovered/Resolved]

NARRATIVE: CASE EVENT DATE: 201710
